FAERS Safety Report 8608925-8 (Version None)
Quarter: 2012Q3

REPORT INFORMATION
  Report Type: 
  Country: None (occurrence: None)
  Receive Date: 20120821
  Receipt Date: 19960220
  Transmission Date: 20120928
  Serious: Yes (Death, Hospitalization)
  Sender: FDA-Public Use
  Company Number: US-ROCHE-1100946

PATIENT
  Sex: Male

DRUGS (1)
  1. ACTIVASE [Suspect]
     Indication: MYOCARDIAL INFARCTION

REACTIONS (9)
  - PAIN IN EXTREMITY [None]
  - HYPOTENSION [None]
  - MENTAL IMPAIRMENT [None]
  - CARDIOGENIC SHOCK [None]
  - BACK PAIN [None]
  - REOCCLUSION [None]
  - INJURY [None]
  - DEATH [None]
  - HYPOXIA [None]
